FAERS Safety Report 20754914 (Version 1)
Quarter: 2022Q2

REPORT INFORMATION
  Report Type: Spontaneous
  Country: US (occurrence: US)
  Receive Date: 20220427
  Receipt Date: 20220427
  Transmission Date: 20220721
  Serious: Yes (Other)
  Sender: FDA-Public Use
  Company Number: US-AMGEN-USASP2022068401

PATIENT
  Age: 61 Year
  Sex: Male

DRUGS (3)
  1. PARSABIV [Suspect]
     Active Substance: ETELCALCETIDE HYDROCHLORIDE
     Indication: Product used for unknown indication
     Dosage: 5 MILLIGRAM, UNK
     Route: 065
  2. PARSABIV [Suspect]
     Active Substance: ETELCALCETIDE HYDROCHLORIDE
     Dosage: 7.5 MILLIGRAM, UNK
     Route: 065
  3. PARSABIV [Suspect]
     Active Substance: ETELCALCETIDE HYDROCHLORIDE
     Dosage: 6 MILLIGRAM, UNK
     Route: 065

REACTIONS (2)
  - Hyperkalaemia [Recovered/Resolved]
  - Off label use [Unknown]
